FAERS Safety Report 6071414-1 (Version None)
Quarter: 2009Q1

REPORT INFORMATION
  Report Type: 
  Country: None (occurrence: None)
  Receive Date: 20090204
  Receipt Date: 20090128
  Transmission Date: 20090719
  Serious: Yes (Hospitalization)
  Sender: FDA-Public Use
  Company Number: DEP_00232_2009

PATIENT
  Age: 15 Year
  Sex: Female

DRUGS (1)
  1. METFORMIN HCL [Suspect]
     Indication: DRUG USE FOR UNKNOWN INDICATION
     Dosage: (800 MG 1X ORAL)
     Route: 048

REACTIONS (19)
  - ABDOMINAL PAIN [None]
  - BLOOD CREATININE INCREASED [None]
  - BRADYCARDIA [None]
  - CONTINUOUS HAEMODIAFILTRATION [None]
  - DIARRHOEA [None]
  - DRUG LEVEL ABOVE THERAPEUTIC [None]
  - HAEMODIALYSIS [None]
  - HAEMODYNAMIC INSTABILITY [None]
  - HEADACHE [None]
  - HYPERGLYCAEMIA [None]
  - HYPERLACTACIDAEMIA [None]
  - HYPOGLYCAEMIA [None]
  - HYPOTENSION [None]
  - METABOLIC ACIDOSIS [None]
  - OVERDOSE [None]
  - RENAL IMPAIRMENT [None]
  - SUICIDE ATTEMPT [None]
  - TACHYCARDIA [None]
  - VOMITING [None]
